FAERS Safety Report 24288764 (Version 1)
Quarter: 2024Q3

REPORT INFORMATION
  Report Type: Spontaneous
  Country: US (occurrence: US)
  Receive Date: 20240906
  Receipt Date: 20240906
  Transmission Date: 20241016
  Serious: No
  Sender: STRIDES
  Company Number: US-STRIDES ARCOLAB LIMITED-2024SP003460

PATIENT
  Age: 30 Year
  Sex: Female

DRUGS (16)
  1. CETIRIZINE [Suspect]
     Active Substance: CETIRIZINE HYDROCHLORIDE
     Indication: Type I hypersensitivity
     Dosage: 10 MILLIGRAM
     Route: 048
  2. CETIRIZINE [Suspect]
     Active Substance: CETIRIZINE HYDROCHLORIDE
     Indication: Prophylaxis
  3. MONTELUKAST [Suspect]
     Active Substance: MONTELUKAST SODIUM
     Indication: Type I hypersensitivity
     Dosage: 10 MILLIGRAM
     Route: 048
  4. MONTELUKAST [Suspect]
     Active Substance: MONTELUKAST SODIUM
     Indication: Prophylaxis
  5. FLUOROURACIL [Suspect]
     Active Substance: FLUOROURACIL
     Indication: Ovarian epithelial cancer
     Dosage: UNK, CYCLICAL (FOUR TWO-WEEK CYCLES)
     Route: 065
  6. FLUOROURACIL [Suspect]
     Active Substance: FLUOROURACIL
     Indication: Ovarian cancer stage III
  7. OXALIPLATIN [Suspect]
     Active Substance: OXALIPLATIN
     Indication: Ovarian epithelial cancer
     Dosage: UNK, CYCLICAL (FOUR TWO-WEEK CYCLES)
     Route: 065
  8. OXALIPLATIN [Suspect]
     Active Substance: OXALIPLATIN
     Indication: Ovarian cancer stage III
     Dosage: UNK, CYCLICAL (FOUR-BAG OXALIPLATIN DESENSITISATION PROTOCOL)
     Route: 065
  9. LEUCOVORIN [Suspect]
     Active Substance: LEUCOVORIN\LEUCOVORIN CALCIUM
     Indication: Chemotherapy side effect prophylaxis
     Dosage: UNK
     Route: 065
  10. FAMOTIDINE [Suspect]
     Active Substance: FAMOTIDINE
     Indication: Type I hypersensitivity
     Dosage: 20 MILLIGRAM
     Route: 042
  11. FAMOTIDINE [Suspect]
     Active Substance: FAMOTIDINE
     Indication: Prophylaxis
     Dosage: 40 MILLIGRAM
     Route: 048
  12. DIPHENHYDRAMINE [Suspect]
     Active Substance: DIPHENHYDRAMINE
     Indication: Type I hypersensitivity
     Dosage: 25 MILLIGRAM
     Route: 042
  13. DIPHENHYDRAMINE [Suspect]
     Active Substance: DIPHENHYDRAMINE
     Dosage: 50 MILLIGRAM
     Route: 042
  14. METHYLPREDNISOLONE [Suspect]
     Active Substance: METHYLPREDNISOLONE
     Indication: Maternal therapy to enhance foetal lung maturity
     Dosage: 80 MILLIGRAM
     Route: 042
  15. ONDANSETRON [Suspect]
     Active Substance: ONDANSETRON
     Indication: Type I hypersensitivity
     Dosage: 16 MILLIGRAM
     Route: 042
  16. ONDANSETRON [Suspect]
     Active Substance: ONDANSETRON
     Indication: Prophylaxis

REACTIONS (1)
  - Maternal exposure during pregnancy [Unknown]
